FAERS Safety Report 6259649-6 (Version None)
Quarter: 2009Q3

REPORT INFORMATION
  Report Type: 
  Country: None (occurrence: None)
  Receive Date: 20090701
  Receipt Date: 20090608
  Transmission Date: 20100115
  Serious: Yes (Life-Threatening)
  Sender: FDA-Public Use
  Company Number: 2009230794

PATIENT
  Age: 65 Year
  Sex: Male

DRUGS (10)
  1. FRAGMIN [Suspect]
     Dosage: MG
  2. PIREFENIDONE (PIRFENIDONE) [Suspect]
     Indication: IDIOPATHIC PULMONARY FIBROSIS
     Dosage: 1200 MG, 1X/DAY, ORAL, 600 MG, 1X/DAY, ORAL MG, ORAL
     Route: 048
     Dates: start: 20090422, end: 20090510
  3. PIREFENIDONE (PIRFENIDONE) [Suspect]
     Indication: IDIOPATHIC PULMONARY FIBROSIS
     Dosage: 1200 MG, 1X/DAY, ORAL, 600 MG, 1X/DAY, ORAL MG, ORAL
     Route: 048
     Dates: start: 20090511, end: 20090515
  4. PIREFENIDONE (PIRFENIDONE) [Suspect]
     Indication: IDIOPATHIC PULMONARY FIBROSIS
     Dosage: 1200 MG, 1X/DAY, ORAL, 600 MG, 1X/DAY, ORAL MG, ORAL
     Route: 048
     Dates: start: 20090518, end: 20090520
  5. CIPROFLOXACIN HCL [Suspect]
  6. TIENAM (CILASTATIN, IMIPENEM) [Suspect]
  7. DEXMEDETOMIDINE HYDROCHLORIDE (DEXMEDETOMIDINE HYDROCHLORIDE) [Suspect]
  8. ELASPOL (SIVELESTAT) [Suspect]
  9. NEORAL [Suspect]
  10. BACTRIM [Suspect]

REACTIONS (3)
  - THROMBOCYTOPENIA [None]
  - VOMITING [None]
  - WHITE BLOOD CELL COUNT DECREASED [None]
